FAERS Safety Report 21031442 (Version 2)
Quarter: 2022Q3

REPORT INFORMATION
  Report Type: Report from Study
  Country: CA (occurrence: None)
  Receive Date: 20220701
  Receipt Date: 20220707
  Transmission Date: 20221026
  Serious: Yes (Hospitalization)
  Sender: FDA-Public Use
  Company Number: CA-Merck Healthcare KGaA-9331748

PATIENT
  Age: 54 Year
  Sex: Female

DRUGS (2)
  1. MAVENCLAD [Suspect]
     Active Substance: CLADRIBINE
     Indication: Multiple sclerosis
     Dosage: YEAR ONE WEEK ONE THERAPY: TWO DOSAGE FORMS ON DAYS 1, 2 AND ONE DOSAGE FORM ON DAYS THREE TO FIVE
     Route: 048
     Dates: start: 20201223
  2. MAVENCLAD [Suspect]
     Active Substance: CLADRIBINE
     Dosage: YEAR ONE WEEK FIVE THERAPY: TWO DOSAGE FORMS ON DAYS 1, 2 AND ONE DOSAGE FORM ON DAYS THREE TO FIVE
     Route: 048

REACTIONS (2)
  - Dyspnoea [Recovered/Resolved]
  - Multiple sclerosis relapse [Unknown]

NARRATIVE: CASE EVENT DATE: 20220301
